FAERS Safety Report 6613953-8 (Version None)
Quarter: 2010Q1

REPORT INFORMATION
  Report Type: 
  Country: None (occurrence: None)
  Receive Date: 20100304
  Receipt Date: 20100223
  Transmission Date: 20100710
  Serious: Yes (Other)
  Sender: FDA-Public Use
  Company Number: Z0000666B

PATIENT
  Sex: Female
  Weight: 64 kg

DRUGS (2)
  1. BLINDED TRIAL MEDICATION [Suspect]
     Route: 048
     Dates: start: 20080802
  2. LAPATINIB [Suspect]
     Dosage: 1500MG PER DAY
     Route: 048
     Dates: start: 20080802

REACTIONS (1)
  - NEUTROPENIA [None]
